FAERS Safety Report 6360631-9 (Version None)
Quarter: 2009Q3

REPORT INFORMATION
  Report Type: 
  Country: None (occurrence: None)
  Receive Date: 20090915
  Receipt Date: 20090831
  Transmission Date: 20100115
  Serious: Yes (Death)
  Sender: FDA-Public Use
  Company Number: 139

PATIENT
  Sex: Male

DRUGS (1)
  1. FAZACLO ODT [Suspect]
     Dosage: 450 MG PO DAILY
     Route: 048
     Dates: start: 20070305, end: 20070730

REACTIONS (1)
  - CARDIAC ARREST [None]
